FAERS Safety Report 12305016 (Version 1)
Quarter: 2016Q2

REPORT INFORMATION
  Report Type: Report from Study
  Country: GB (occurrence: GB)
  Receive Date: 20160426
  Receipt Date: 20160426
  Transmission Date: 20160815
  Serious: Yes (Hospitalization)
  Sender: FDA-Public Use
  Company Number: GB-ROCHE-1747211

PATIENT
  Sex: Female
  Weight: 83.3 kg

DRUGS (1)
  1. RITUXIMAB [Suspect]
     Active Substance: RITUXIMAB
     Indication: RHEUMATOID ARTHRITIS
     Dosage: MOST RECENT DOSE PRIOR TO THE EVENT: 19/NOV/2012
     Route: 065
     Dates: start: 20080815

REACTIONS (1)
  - Femur fracture [Unknown]

NARRATIVE: CASE EVENT DATE: 20130615
